FAERS Safety Report 8431349-3 (Version None)
Quarter: 2012Q2

REPORT INFORMATION
  Report Type: 
  Country: None (occurrence: None)
  Receive Date: 20120613
  Receipt Date: 20120605
  Transmission Date: 20120825
  Serious: No
  Sender: FDA-Public Use
  Company Number: US-BIOGENIDEC-2012BI019851

PATIENT
  Sex: Female

DRUGS (1)
  1. AVONEX [Suspect]
     Indication: MULTIPLE SCLEROSIS
     Route: 030

REACTIONS (10)
  - FATIGUE [None]
  - INCREASED TENDENCY TO BRUISE [None]
  - PAIN IN EXTREMITY [None]
  - PAIN [None]
  - ANXIETY [None]
  - CONTUSION [None]
  - POLYP [None]
  - BENIGN NEOPLASM [None]
  - MUSCULOSKELETAL DISORDER [None]
  - DEPRESSION [None]
